FAERS Safety Report 12577388 (Version 1)
Quarter: 2016Q3

REPORT INFORMATION
  Report Type: Spontaneous
  Country: CN (occurrence: CN)
  Receive Date: 20160720
  Receipt Date: 20160720
  Transmission Date: 20161109
  Serious: Yes (Life-Threatening)
  Sender: FDA-Public Use
  Company Number: CN-FRESENIUS KABI-FK201604416

PATIENT
  Age: 49 Year
  Sex: Male

DRUGS (2)
  1. VOLUVEN [Suspect]
     Active Substance: HYDROXYETHYL STARCH 130/0.4
     Indication: SHOCK
  2. VOLUVEN [Suspect]
     Active Substance: HYDROXYETHYL STARCH 130/0.4
     Indication: INFECTION
     Route: 041
     Dates: start: 20160115, end: 20160115

REACTIONS (1)
  - Dyspnoea [Recovering/Resolving]

NARRATIVE: CASE EVENT DATE: 20160115
